FAERS Safety Report 18521474 (Version 1)
Quarter: 2020Q4

REPORT INFORMATION
  Report Type: Spontaneous
  Country: JP (occurrence: JP)
  Receive Date: 20201119
  Receipt Date: 20201119
  Transmission Date: 20210114
  Serious: Yes (Hospitalization)
  Sender: FDA-Public Use
  Company Number: NVSJ2020JP011980

PATIENT
  Sex: Male

DRUGS (1)
  1. ENERZAIR (MOMETASONE FUROATE\INDACATEROL ACETATE\GLYCOPYRRONIUM BROMIDE) [Suspect]
     Active Substance: GLYCOPYRROLATE\INDACATEROL\MOMETASONE FUROATE
     Indication: ASTHMA
     Dosage: 1 DF: INDACATEROL ACETATE 173UG (INDACATEROL 150UG), GLYCOPYRRONIUM BROMIDE 63UG (GLYCOPYRRONIUM 50U
     Route: 055

REACTIONS (2)
  - Concomitant disease aggravated [Unknown]
  - Physical deconditioning [Unknown]
